FAERS Safety Report 10524499 (Version 1)
Quarter: 2014Q4

REPORT INFORMATION
  Report Type: Spontaneous
  Country: US (occurrence: US)
  Receive Date: 20141017
  Receipt Date: 20141017
  Transmission Date: 20150528
  Serious: Yes (Other)
  Sender: FDA-Public Use
  Company Number: US-ELI_LILLY_AND_COMPANY-US201410006103

PATIENT
  Sex: Female

DRUGS (4)
  1. CARBOPLATIN. [Suspect]
     Active Substance: CARBOPLATIN
     Indication: GENITAL NEOPLASM MALIGNANT FEMALE
     Dosage: 2 MG/M2, UNKNOWN
     Route: 065
  2. GEMCITABINE HYDROCHLORIDE. [Suspect]
     Active Substance: GEMCITABINE HYDROCHLORIDE
     Indication: GENITAL NEOPLASM MALIGNANT FEMALE
     Dosage: 300 MG/M2, CYCLICAL
     Route: 065
  3. CARBOPLATIN. [Suspect]
     Active Substance: CARBOPLATIN
     Dosage: 4 MG/M2, UNKNOWN
     Route: 065
  4. GEMCITABINE HYDROCHLORIDE. [Suspect]
     Active Substance: GEMCITABINE HYDROCHLORIDE
     Dosage: 800 MG/M2, CYCLICAL
     Route: 065

REACTIONS (1)
  - Hypokalaemia [Unknown]
